FAERS Safety Report 10209548 (Version 2)
Quarter: 2014Q2

REPORT INFORMATION
  Report Type: Spontaneous
  Country: US (occurrence: US)
  Receive Date: 20140602
  Receipt Date: 20140603
  Transmission Date: 20141212
  Serious: Yes (Other)
  Sender: FDA-Public Use
  Company Number: US-ROCHE-1409609

PATIENT
  Age: 67 Year
  Sex: Male

DRUGS (2)
  1. KLONOPIN [Suspect]
     Indication: POST-TRAUMATIC STRESS DISORDER
     Route: 065
     Dates: start: 1988
  2. KLONOPIN [Suspect]
     Indication: ANXIETY

REACTIONS (1)
  - Testis cancer [Unknown]
